FAERS Safety Report 23407358 (Version 1)
Quarter: 2024Q1

REPORT INFORMATION
  Report Type: Report from Study
  Country: US (occurrence: US)
  Receive Date: 20240116
  Receipt Date: 20240116
  Transmission Date: 20240410
  Serious: Yes (Other)
  Sender: FDA-Public Use
  Company Number: US-ABBVIE-5587982

PATIENT
  Sex: Male

DRUGS (1)
  1. VENCLEXTA [Suspect]
     Active Substance: VENETOCLAX
     Indication: Acute myeloid leukaemia
     Dosage: 1 TABLET BY MOUTH ALONG WITH TWO 10MG TABLETS DAILY  FOR 2 WEEKS ON THEN 2 WEEKS OFF?FORM STRENGT...
     Route: 048

REACTIONS (1)
  - Hospice care [Not Recovered/Not Resolved]
